FAERS Safety Report 9033757 (Version 5)
Quarter: 2013Q3

REPORT INFORMATION
  Report Type: Spontaneous
  Country: BR (occurrence: BR)
  Receive Date: 20130128
  Receipt Date: 20130709
  Transmission Date: 20140515
  Serious: Yes (Hospitalization, Other)
  Sender: FDA-Public Use
  Company Number: BR-AMGEN-BRACT2012007426

PATIENT
  Age: 49 Year
  Sex: Female
  Weight: 49 kg

DRUGS (27)
  1. ENBREL [Suspect]
     Indication: RHEUMATOID ARTHRITIS
     Dosage: 25 MG, 2X/WEEK
     Route: 058
     Dates: start: 2008
  2. ENBREL [Suspect]
     Dosage: 25 MG, WEEKLY
     Dates: start: 200810
  3. ENBREL [Suspect]
     Dosage: 50 MG, WEEKLY
     Route: 058
     Dates: start: 2012
  4. ENBREL [Suspect]
     Dosage: 50 MG, ONCE WEEKLY
     Route: 058
     Dates: start: 201207, end: 201302
  5. ENBREL [Suspect]
     Dosage: UNK
     Route: 065
     Dates: start: 20130322
  6. METHOTREXATE [Suspect]
     Indication: RHEUMATOID ARTHRITIS
     Dosage: 5 MG (2 TABLETS OF 2.5MG), WEEKLY
  7. FOLIC ACID [Concomitant]
     Dosage: 5 MG, 2X/WEEK
  8. CALCIUM [Concomitant]
     Dosage: UNK UNK, BID
  9. CALCIUM [Concomitant]
     Dosage: UNK, 2X/DAY
  10. OMEGA                              /01454401/ [Concomitant]
     Dosage: 369 MG, BID
  11. PURAN T4 [Concomitant]
     Indication: HYPOTHYROIDISM
     Dosage: A HALF OF TABLET FROM MONDAY TO THURSDAY
  12. PURAN T4 [Concomitant]
  13. RANITIDINE [Concomitant]
     Dosage: 150 MG, 1X/DAY
  14. SIMVASTATIN [Concomitant]
     Indication: BLOOD CHOLESTEROL
     Dosage: 20 MG, 1X/DAY
  15. ACTONEL [Concomitant]
     Indication: OSTEOPOROSIS
     Dosage: 150 MG, MONTHLY
  16. ACTONEL [Concomitant]
     Indication: BONE DISORDER
  17. ALPRAZOLAM [Concomitant]
     Dosage: UNK, 1X/DAY AT NIGHT
  18. HALOPERIDOL [Concomitant]
     Dosage: UNK
  19. ISONIAZID [Concomitant]
     Dosage: UNK, 1X/DAY
  20. CALTRATE                           /07357001/ [Concomitant]
     Dosage: UNK
  21. OMEGA 3                            /01334101/ [Concomitant]
     Dosage: UNK
  22. FLUOXETINE [Concomitant]
     Dosage: UNK
  23. CALCIUM 600 WITH VITAMIN D [Concomitant]
     Dosage: UNK
  24. ADALAT [Concomitant]
     Dosage: 400 UNK, UNK
  25. ADALAT [Concomitant]
     Dosage: ^400^ UNSPECIFIED UNIT
  26. PROTOS                             /00737201/ [Concomitant]
     Dosage: UNK
  27. CENTRUM                            /07499601/ [Concomitant]
     Dosage: UNK

REACTIONS (35)
  - Immunosuppression [Unknown]
  - Bronchial secretion retention [Not Recovered/Not Resolved]
  - Pyrexia [Unknown]
  - Dyspnoea [Unknown]
  - Extrapulmonary tuberculosis [Unknown]
  - Nasopharyngitis [Not Recovered/Not Resolved]
  - Sinusitis [Unknown]
  - Cough [Not Recovered/Not Resolved]
  - Hypersensitivity [Unknown]
  - Heart rate irregular [Unknown]
  - Tonsillitis [Not Recovered/Not Resolved]
  - Chills [Not Recovered/Not Resolved]
  - Drug ineffective [Unknown]
  - Anaemia [Not Recovered/Not Resolved]
  - Injection site erythema [Unknown]
  - Influenza [Not Recovered/Not Resolved]
  - Sensation of heaviness [Not Recovered/Not Resolved]
  - Pain [Not Recovered/Not Resolved]
  - Finger deformity [Unknown]
  - Abdominal discomfort [Unknown]
  - Sleep disorder [Unknown]
  - Arthritis [Not Recovered/Not Resolved]
  - Diarrhoea [Not Recovered/Not Resolved]
  - Asthenia [Not Recovered/Not Resolved]
  - Decreased appetite [Not Recovered/Not Resolved]
  - Dry throat [Not Recovered/Not Resolved]
  - Dry eye [Not Recovered/Not Resolved]
  - Bedridden [Not Recovered/Not Resolved]
  - Oropharyngeal pain [Not Recovered/Not Resolved]
  - Dysphonia [Not Recovered/Not Resolved]
  - Vomiting [Not Recovered/Not Resolved]
  - Gastric disorder [Not Recovered/Not Resolved]
  - Malaise [Not Recovered/Not Resolved]
  - Nervousness [Unknown]
  - Gastrointestinal motility disorder [Not Recovered/Not Resolved]
